FAERS Safety Report 7040442-1 (Version None)
Quarter: 2010Q4

REPORT INFORMATION
  Report Type: 
  Country: None (occurrence: None)
  Receive Date: 20101008
  Receipt Date: 20101008
  Transmission Date: 20110411
  Serious: Yes (Other)
  Sender: FDA-Public Use
  Company Number: None

PATIENT
  Age: 89 Year
  Sex: Female
  Weight: 68.9467 kg

DRUGS (1)
  1. ZENPEP [Suspect]
     Dosage: 1 04 2 CAPS 2X DAY MEAL ORAL (AM - PM)
     Route: 048
     Dates: start: 20100908

REACTIONS (3)
  - DYSPNOEA [None]
  - OEDEMA PERIPHERAL [None]
  - SWELLING FACE [None]
